FAERS Safety Report 8621913-0 (Version None)
Quarter: 2012Q3

REPORT INFORMATION
  Report Type: 
  Country: None (occurrence: None)
  Receive Date: 20120825
  Receipt Date: 20120822
  Transmission Date: 20120928
  Serious: Yes (Disabling, Other)
  Sender: FDA-Public Use
  Company Number: IN-ALLERGAN-1210997US

PATIENT
  Age: 58 Year
  Sex: Male

DRUGS (1)
  1. OZURDEX [Suspect]
     Dosage: 0.7 MG, SINGLE
     Route: 031
     Dates: start: 20120808, end: 20120808

REACTIONS (3)
  - VISUAL ACUITY REDUCED [None]
  - MEDICAL DEVICE COMPLICATION [None]
  - VITREOUS HAEMORRHAGE [None]
